FAERS Safety Report 8872686 (Version 1)
Quarter: 2012Q4

REPORT INFORMATION
  Report Type: 
  Country: FR (occurrence: FR)
  Receive Date: 20121029
  Receipt Date: 20121029
  Transmission Date: 20130627
  Serious: Yes (Hospitalization)
  Sender: FDA-Public Use
  Company Number: FR-MYLANLABS-2012S1021775

PATIENT

DRUGS (2)
  1. MEMANTINE [Suspect]
     Route: 065
  2. DIGOXIN [Suspect]
     Indication: OVERDOSE
     Route: 065

REACTIONS (2)
  - Fall [Unknown]
  - Overdose [Unknown]
